FAERS Safety Report 12162072 (Version 1)
Quarter: 2016Q1

REPORT INFORMATION
  Report Type: Spontaneous
  Country: US (occurrence: None)
  Receive Date: 20160308
  Receipt Date: 20160308
  Transmission Date: 20160526
  Serious: Yes (Hospitalization)
  Sender: FDA-Public Use
  Company Number: None

PATIENT
  Age: 73 Year
  Sex: Male
  Weight: 58.8 kg

DRUGS (2)
  1. LISINOPRIL-HCTZ [Concomitant]
     Active Substance: HYDROCHLOROTHIAZIDE\LISINOPRIL
  2. ROBAXIN [Suspect]
     Active Substance: METHOCARBAMOL
     Indication: PAIN IN EXTREMITY
     Dosage: 750MG 4 X DAY PO
     Route: 048

REACTIONS (4)
  - Subarachnoid haemorrhage [None]
  - Fall [None]
  - Generalised tonic-clonic seizure [None]
  - Postictal state [None]

NARRATIVE: CASE EVENT DATE: 20151110
